FAERS Safety Report 23319510 (Version 1)
Quarter: 2023Q4

REPORT INFORMATION
  Report Type: Other
  Country: US (occurrence: US)
  Receive Date: 20231220
  Receipt Date: 20231220
  Transmission Date: 20240109
  Serious: Yes (Other)
  Sender: FDA-Public Use
  Company Number: US-BoehringerIngelheim-2023-BI-238203

PATIENT
  Age: 72 Year
  Sex: Male
  Weight: 77.27 kg

DRUGS (2)
  1. ALTEPLASE [Suspect]
     Active Substance: ALTEPLASE
     Indication: Ischaemic stroke
     Dosage: 70MG WITH 10% AS BOLUS
     Route: 040
  2. ALTEPLASE [Suspect]
     Active Substance: ALTEPLASE
     Dosage: REMAINDER AS IV DRIP NEXT HOUR AND VOLUME EXPANSION
     Route: 041

REACTIONS (1)
  - Angioedema [Recovering/Resolving]
